FAERS Safety Report 11591612 (Version 1)
Quarter: 2015Q4

REPORT INFORMATION
  Report Type: Report from Study
  Country: US (occurrence: US)
  Receive Date: 20151005
  Receipt Date: 20151005
  Transmission Date: 20160304
  Serious: Yes (Other)
  Sender: FDA-Public Use
  Company Number: US-ROCHE-1375173

PATIENT
  Sex: Male

DRUGS (15)
  1. ALPHAGAN P [Concomitant]
     Active Substance: BRIMONIDINE TARTRATE
     Route: 065
  2. LUCENTIS [Suspect]
     Active Substance: RANIBIZUMAB
     Indication: MACULAR DEGENERATION
     Dosage: 1 EYE 1 MONTH, THE OTHER EYE THE NEXT MONTH
     Route: 050
     Dates: end: 2013
  3. LEVETIRACETAM. [Concomitant]
     Active Substance: LEVETIRACETAM
     Indication: SEIZURE
     Route: 048
  4. ALPHAGAN P [Concomitant]
     Active Substance: BRIMONIDINE TARTRATE
     Indication: MACULAR DEGENERATION
     Dosage: DROP, RIGHT EYE
     Route: 065
  5. CARVEDILOL. [Concomitant]
     Active Substance: CARVEDILOL
     Route: 048
  6. RAMIPRIL. [Concomitant]
     Active Substance: RAMIPRIL
     Dosage: IN THE AM
     Route: 048
  7. OMEPRAZOLE. [Concomitant]
     Active Substance: OMEPRAZOLE
     Route: 048
  8. SIMVASTATIN. [Concomitant]
     Active Substance: SIMVASTATIN
     Dosage: AT BEDTIME
     Route: 048
  9. ASMANEX [Concomitant]
     Active Substance: MOMETASONE FUROATE
     Indication: COUGH
     Dosage: 2200MCG/ACTUATION?1 TREATMENT PER DAY AT BEDTIME
     Route: 065
  10. LAMOTRIGINE. [Concomitant]
     Active Substance: LAMOTRIGINE
     Dosage: 1 TABLET IN AM, 2 TABLETS IN PM
     Route: 048
  11. LUCENTIS [Suspect]
     Active Substance: RANIBIZUMAB
     Route: 050
     Dates: start: 20140327
  12. SPIRIVA [Concomitant]
     Active Substance: TIOTROPIUM BROMIDE MONOHYDRATE
     Dosage: 30 TABLETS, 1 TREATMENT PER DAY
     Route: 065
  13. LUCENTIS [Suspect]
     Active Substance: RANIBIZUMAB
     Route: 050
  14. FUROSEMIDE. [Concomitant]
     Active Substance: FUROSEMIDE
     Route: 048
  15. BENZONATATE. [Concomitant]
     Active Substance: BENZONATATE
     Indication: COUGH
     Route: 048

REACTIONS (6)
  - Aneurysm [Unknown]
  - Deafness [Unknown]
  - Drug ineffective [Unknown]
  - Seizure [Unknown]
  - Hypoacusis [Unknown]
  - Visual acuity reduced [Unknown]
